FAERS Safety Report 8051006-5 (Version None)
Quarter: 2012Q1

REPORT INFORMATION
  Report Type: 
  Country: None (occurrence: None)
  Receive Date: 20120117
  Receipt Date: 20120111
  Transmission Date: 20120608
  Serious: Yes (Other)
  Sender: FDA-Public Use
  Company Number: PHEH2007US11290

PATIENT
  Sex: Male
  Weight: 77.098 kg

DRUGS (16)
  1. ZOMETA [Suspect]
  2. CLINDAMYCIN [Concomitant]
     Dosage: 210 MG, UNK
  3. LISINOPRIL [Concomitant]
     Dosage: 10 MG, QD
     Route: 048
  4. SERTRALINE HYDROCHLORIDE [Concomitant]
     Dosage: 100 MG, QD
     Route: 048
  5. CIPROFLOXACIN [Concomitant]
  6. LIPITOR [Concomitant]
     Dosage: 10 MG, QD
     Route: 048
  7. PREVACID [Concomitant]
     Dosage: 30 MG, PRN
     Route: 048
  8. PENICILLIN ^GRUNENTHAL^ [Concomitant]
  9. ACYCLOVIR [Concomitant]
     Dosage: 400 MG, BID
  10. PERIDEX [Concomitant]
  11. ASPIRIN [Concomitant]
     Dosage: 81 MG, QD
     Route: 048
  12. ALPRAZOLAM [Concomitant]
     Dosage: 0.25 MG, Q6H, PRN
     Route: 048
  13. VINCRISTINE + ADRIAMYCIN + DEXAMETHASONE [Concomitant]
  14. ZOLOFT [Concomitant]
     Dosage: 100 MG, QD
     Route: 048
  15. AREDIA [Suspect]
     Indication: MULTIPLE MYELOMA
  16. MELPHALAN HYDROCHLORIDE [Concomitant]

REACTIONS (26)
  - DIABETES MELLITUS [None]
  - ANXIETY [None]
  - HYPERLIPIDAEMIA [None]
  - EYELID DISORDER [None]
  - PAIN [None]
  - DISCOMFORT [None]
  - BONE DISORDER [None]
  - METAPLASIA [None]
  - OTITIS MEDIA [None]
  - DEPRESSION [None]
  - OSTEONECROSIS OF JAW [None]
  - EMOTIONAL DISTRESS [None]
  - ANHEDONIA [None]
  - OSTEOPENIA [None]
  - CARDIAC MURMUR [None]
  - HYPOPHAGIA [None]
  - MOUTH ULCERATION [None]
  - SINUSITIS [None]
  - HAEMATURIA [None]
  - LEFT VENTRICULAR DYSFUNCTION [None]
  - DEFORMITY [None]
  - RENAL CYST [None]
  - HYPERTENSION [None]
  - LIFE EXPECTANCY SHORTENED [None]
  - HYPERCHOLESTEROLAEMIA [None]
  - GASTROOESOPHAGEAL REFLUX DISEASE [None]
